FAERS Safety Report 12402802 (Version 2)
Quarter: 2016Q2

REPORT INFORMATION
  Report Type: Spontaneous
  Country: US (occurrence: US)
  Receive Date: 20160525
  Receipt Date: 20160531
  Transmission Date: 20160815
  Serious: Yes (Hospitalization, Other)
  Sender: FDA-Public Use
  Company Number: US-MDT-ADR-2016-00939

PATIENT
  Age: 29 Year
  Sex: Female

DRUGS (1)
  1. LIORESAL [Suspect]
     Active Substance: BACLOFEN
     Route: 037

REACTIONS (6)
  - Cystitis [Unknown]
  - Hyperhidrosis [Unknown]
  - Condition aggravated [Unknown]
  - No therapeutic response [Unknown]
  - Pneumonia aspiration [Unknown]
  - Hypertonia [Unknown]

NARRATIVE: CASE EVENT DATE: 201605
